FAERS Safety Report 4863037-4 (Version None)
Quarter: 2005Q4

REPORT INFORMATION
  Report Type: 
  Country: None (occurrence: None)
  Receive Date: 20051221
  Receipt Date: 20050217
  Transmission Date: 20060501
  Serious: Yes (Hospitalization)
  Sender: FDA-Public Use
  Company Number: US-MERCK-0502USA02616

PATIENT
  Age: 73 Year
  Sex: Female
  Weight: 65 kg

DRUGS (4)
  1. VIOXX [Suspect]
     Indication: ARTHRITIS
     Route: 048
     Dates: start: 20010101, end: 20040901
  2. ONE-A-DAY ESSENTIAL VITAMINS [Concomitant]
     Route: 065
  3. FOLIC ACID [Concomitant]
     Route: 065
  4. GLUCOSAMINE [Concomitant]
     Route: 065

REACTIONS (8)
  - ARTERIOSCLEROSIS CORONARY ARTERY [None]
  - ARTHROPATHY [None]
  - BLOOD CHOLESTEROL INCREASED [None]
  - CHRONIC OBSTRUCTIVE PULMONARY DISEASE [None]
  - DEPRESSION [None]
  - LIPIDS DECREASED [None]
  - TOE DEFORMITY [None]
  - VERTIGO [None]
